FAERS Safety Report 22356776 (Version 2)
Quarter: 2023Q2

REPORT INFORMATION
  Report Type: Spontaneous
  Country: NL (occurrence: NL)
  Receive Date: 20230523
  Receipt Date: 20230601
  Transmission Date: 20230721
  Serious: Yes (Life-Threatening, Hospitalization)
  Sender: FDA-Public Use
  Company Number: NL-AMERICAN REGENT INC-2023001218

PATIENT
  Sex: Male
  Weight: 75.5 kg

DRUGS (2)
  1. FERINJECT [Suspect]
     Active Substance: FERRIC CARBOXYMALTOSE
     Indication: Product used for unknown indication
     Dosage: UNSPECIFIED DOSE
  2. FERINJECT [Suspect]
     Active Substance: FERRIC CARBOXYMALTOSE
     Dosage: 1 DOSAGE FORM, SINGLE INFUSION
     Dates: start: 20230406, end: 20230406

REACTIONS (3)
  - Sepsis [Recovering/Resolving]
  - Pneumonia [Recovering/Resolving]
  - Adverse event [Unknown]

NARRATIVE: CASE EVENT DATE: 20230408
